APPROVED DRUG PRODUCT: SEPTRA GRAPE
Active Ingredient: SULFAMETHOXAZOLE; TRIMETHOPRIM
Strength: 200MG/5ML;40MG/5ML **Federal Register determination that product was not discontinued or withdrawn for safety or effectiveness reasons**
Dosage Form/Route: SUSPENSION;ORAL
Application: N017598 | Product #002
Applicant: MONARCH PHARMACEUTICALS INC
Approved: Feb 12, 1986 | RLD: No | RS: No | Type: DISCN